FAERS Safety Report 8075873-4 (Version None)
Quarter: 2012Q1

REPORT INFORMATION
  Report Type: 
  Country: None (occurrence: None)
  Receive Date: 20120127
  Receipt Date: 20120125
  Transmission Date: 20120608
  Serious: Yes (Other)
  Sender: FDA-Public Use
  Company Number: US-PFIZER INC-2012021255

PATIENT
  Sex: Male
  Weight: 108.84 kg

DRUGS (5)
  1. BYSTOLIC [Concomitant]
     Indication: HYPERTENSION
     Dosage: 10 MG, UNK
  2. AMLODIPINE [Concomitant]
     Indication: HYPERTENSION
     Dosage: UNK
  3. LISINOPRIL [Concomitant]
     Indication: HYPERTENSION
     Dosage: 20 MG, UNK
  4. FLOMAX [Concomitant]
     Dosage: UNK
  5. CHANTIX [Suspect]
     Indication: SMOKING CESSATION THERAPY
     Dosage: 0.5 MG, 1X/DAY
     Route: 048
     Dates: start: 20081001

REACTIONS (1)
  - BLOOD CHOLESTEROL INCREASED [None]
